FAERS Safety Report 18658825 (Version 3)
Quarter: 2021Q1

REPORT INFORMATION
  Report Type: Spontaneous
  Country: GB (occurrence: GB)
  Receive Date: 20201224
  Receipt Date: 20210225
  Transmission Date: 20210419
  Serious: Yes (Other)
  Sender: FDA-Public Use
  Company Number: GB-BIOVITRUM-2020GB7899

PATIENT
  Age: 41 Year
  Sex: Male

DRUGS (21)
  1. CO?CODAMOL ? 30/500MG ONE TABLET TD [Concomitant]
     Dosage: 30/500MG ONE TABLET TDS
     Dates: start: 2014
  2. BISOPROLOL [Concomitant]
     Active Substance: BISOPROLOL
     Dates: start: 2015
  3. NAPROXEN 250MG BD [Concomitant]
     Dates: start: 2014
  4. RAMIPRIL. [Concomitant]
     Active Substance: RAMIPRIL
     Dates: start: 2015
  5. ORFADIN [Suspect]
     Active Substance: NITISINONE
     Indication: ALKAPTONURIA
     Dates: start: 2014
  6. NAPROXEN 250MG BD [Concomitant]
     Dates: start: 2015
  7. BISOPROLOL [Concomitant]
     Active Substance: BISOPROLOL
     Dates: start: 2016
  8. ORFADIN [Suspect]
     Active Substance: NITISINONE
     Dates: start: 2015
  9. ATORVASTATIN [Concomitant]
     Active Substance: ATORVASTATIN
     Dates: start: 2016
  10. ASPIRIN 75MG [Concomitant]
     Dates: start: 2016
  11. IBUPROFEN 400MG [Concomitant]
     Active Substance: IBUPROFEN
  12. COLECALCIFEROL 20MG [Concomitant]
     Dates: start: 2016
  13. PARACETAMOL 500MG [Concomitant]
     Active Substance: ACETAMINOPHEN
     Dates: start: 2016
  14. ORFADIN [Suspect]
     Active Substance: NITISINONE
     Dates: start: 2016
  15. ATORVASTATIN [Concomitant]
     Active Substance: ATORVASTATIN
     Dates: start: 2015
  16. PREGABALIN 25MG [Concomitant]
     Active Substance: PREGABALIN
     Dates: start: 2016
  17. CO?CODAMOL ? 30/500MG ONE TABLET TD [Concomitant]
     Dates: start: 2015
  18. DIHYDROCODEINE 30MG [Concomitant]
     Dates: start: 2016
  19. OMEPRAZOLE 20MG [Concomitant]
     Active Substance: OMEPRAZOLE
     Dates: start: 2016
  20. RAMIPRIL 10MG [Concomitant]
     Active Substance: RAMIPRIL
     Dates: start: 2016
  21. SENNA 7.5MG [Concomitant]
     Dates: start: 2016

REACTIONS (3)
  - Lenticular opacities [Not Recovered/Not Resolved]
  - Amino acid level increased [Not Recovered/Not Resolved]
  - Conjunctival oedema [Not Recovered/Not Resolved]

NARRATIVE: CASE EVENT DATE: 2014
